FAERS Safety Report 8174563 (Version 4)
Quarter: 2012Q4

REPORT INFORMATION
  Report Type: 
  Country: US (occurrence: US)
  Receive Date: 20111010
  Receipt Date: 20121127
  Transmission Date: 20130627
  Serious: Yes (Other)
  Sender: FDA-Public Use
  Company Number: US-ASTRAZENECA-2011SE18028

PATIENT
  Age: 67 Year
  Sex: Female

DRUGS (2)
  1. ARIMIDEX [Suspect]
     Route: 048
  2. BUPROPION [Suspect]
     Route: 065

REACTIONS (6)
  - Neoplasm malignant [Unknown]
  - Hypoaesthesia [Unknown]
  - Hypoaesthesia [Unknown]
  - Feeling abnormal [Unknown]
  - Memory impairment [Unknown]
  - Malaise [Unknown]
